FAERS Safety Report 4524542-3 (Version None)
Quarter: 2005Q1

REPORT INFORMATION
  Report Type: 
  Country: None (occurrence: None)
  Receive Date: 20041117
  Receipt Date: 20040422
  Transmission Date: 20050727
  Serious: Yes (Hospitalization)
  Sender: FDA-Public Use
  Company Number: US-JNJFOC-20040206196

PATIENT
  Age: 73 Year
  Sex: Female

DRUGS (4)
  1. LEVAQUIN [Suspect]
     Indication: DRUG USE FOR UNKNOWN INDICATION
     Dates: start: 20040112, end: 20040117
  2. ZOSYN [Concomitant]
  3. AZITHROMYCIN [Concomitant]
  4. PREDNISONE [Concomitant]

REACTIONS (1)
  - PATHOGEN RESISTANCE [None]
